FAERS Safety Report 10472442 (Version 1)
Quarter: 2014Q3

REPORT INFORMATION
  Report Type: Spontaneous
  Country: US (occurrence: None)
  Receive Date: 20140922
  Receipt Date: 20140922
  Transmission Date: 20150326
  Serious: Yes (Hospitalization)
  Sender: FDA-Public Use
  Company Number: 2543642

PATIENT

DRUGS (1)
  1. (DEXMEDETOMIDINE HYDROCHLORIDE) [Suspect]
     Active Substance: DEXMEDETOMIDINE HYDROCHLORIDE
     Indication: SEDATIVE THERAPY
     Dosage: NOT REPORTED (UNKNOWN)
     Route: 055

REACTIONS (1)
  - Sedation [None]
